FAERS Safety Report 4972237-4 (Version None)
Quarter: 2006Q2

REPORT INFORMATION
  Report Type: 
  Country: None (occurrence: None)
  Receive Date: 20060413
  Receipt Date: 20060403
  Transmission Date: 20061013
  Serious: Yes (Other)
  Sender: FDA-Public Use
  Company Number: PHHC2-005

PATIENT
  Age: 56 Year
  Sex: Male

DRUGS (3)
  1. HYCAMTIN [Suspect]
     Dosage: .65MGM2 PER DAY
     Route: 042
  2. CISPLATIN [Suspect]
     Route: 065
  3. DEXAMETHASONE [Suspect]
     Route: 065

REACTIONS (4)
  - ALANINE AMINOTRANSFERASE INCREASED [None]
  - ASPARTATE AMINOTRANSFERASE INCREASED [None]
  - HAEMOGLOBIN DECREASED [None]
  - RED BLOOD CELL COUNT DECREASED [None]
